FAERS Safety Report 7266871-9 (Version None)
Quarter: 2011Q1

REPORT INFORMATION
  Report Type: 
  Country: None (occurrence: None)
  Receive Date: 20110201
  Receipt Date: 20110125
  Transmission Date: 20110831
  Serious: Yes (Other)
  Sender: FDA-Public Use
  Company Number: CHPA2011US01589

PATIENT
  Age: 6 Year
  Sex: Female
  Weight: 23.311 kg

DRUGS (1)
  1. TRIAMINIC COLD AND ALLERGY [Suspect]
     Indication: COUGH
     Dosage: UNK, UNK
     Route: 048
     Dates: start: 20101215, end: 20101215

REACTIONS (3)
  - OFF LABEL USE [None]
  - CONVULSION [None]
  - NAUSEA [None]
